FAERS Safety Report 18841346 (Version 2)
Quarter: 2022Q1

REPORT INFORMATION
  Report Type: Other
  Country: US (occurrence: None)
  Receive Date: 20210204
  Receipt Date: 20220211
  Transmission Date: 20220424
  Serious: Yes (Other)
  Sender: FDA-Public Use
  Company Number: US-ROCHE-2762211

PATIENT

DRUGS (3)
  1. CAPECITABINE [Suspect]
     Active Substance: CAPECITABINE
     Indication: Gastrooesophageal cancer
     Route: 065
  2. CADONILIMAB [Suspect]
     Active Substance: CADONILIMAB
     Indication: Gastrooesophageal cancer
     Dosage: 4, 6 AND 10 MG/KG
     Route: 065
  3. OXALIPLATIN [Suspect]
     Active Substance: OXALIPLATIN
     Indication: Gastrooesophageal cancer
     Route: 065

REACTIONS (11)
  - Neutrophil count decreased [Unknown]
  - Platelet count decreased [Unknown]
  - White blood cell count decreased [Unknown]
  - Anaemia [Unknown]
  - Infusion related reaction [Unknown]
  - Hepatitis [Unknown]
  - Pneumonitis [Unknown]
  - Hyponatraemia [Unknown]
  - Nausea [Unknown]
  - Vomiting [Unknown]
  - Aspartate aminotransferase increased [Unknown]
